FAERS Safety Report 9708121 (Version 1)
Quarter: 2013Q4

REPORT INFORMATION
  Report Type: Spontaneous
  Country: DE (occurrence: None)
  Receive Date: 20131121
  Receipt Date: 20131121
  Transmission Date: 20140711
  Serious: Yes (Hospitalization)
  Sender: FDA-Public Use
  Company Number: FK201304996

PATIENT
  Age: 65 Year
  Sex: Male
  Weight: 94 kg

DRUGS (5)
  1. PROPOFOL [Suspect]
     Indication: INDUCTION OF ANAESTHESIA
     Route: 042
     Dates: start: 20131024, end: 20131024
  2. PROPOFOL 1% (MANUFACTURER UNKNOWN) (PROPOFOL) (PROPOFOL) [Suspect]
     Indication: MAINTENANCE OF ANAESTHESIA
     Dosage: 2.5 MG/KG/H, INTRAVENOUS
     Route: 042
     Dates: start: 20131024, end: 20131024
  3. ULTIVA [Suspect]
     Indication: MAINTENANCE OF ANAESTHESIA
     Dosage: 0.1-0.3 MICROGRAM/KG/MIN, INTRAVENOUS
     Route: 042
     Dates: start: 20131024, end: 20131024
  4. SUFENTANIL [Suspect]
     Indication: INDUCTION OF ANAESTHESIA
     Dosage: 0.1-0.3 MICROGRAM/KG/MIN, INTRAVENOUS
     Route: 042
     Dates: start: 20131024, end: 20131024
  5. NOVALGIN [Suspect]
     Indication: ANALGESIC THERAPY
     Dosage: 2-3 DAY, INTRAVENOUS
     Route: 042
     Dates: start: 20131024, end: 20131029

REACTIONS (4)
  - Drug-induced liver injury [None]
  - Pyrexia [None]
  - Chromaturia [None]
  - Liver function test abnormal [None]
